FAERS Safety Report 4830525-6 (Version None)
Quarter: 2005Q4

REPORT INFORMATION
  Report Type: 
  Country: None (occurrence: None)
  Receive Date: 20051115
  Receipt Date: 20051101
  Transmission Date: 20060501
  Serious: Yes (Death)
  Sender: FDA-Public Use
  Company Number: 02100-UK-05-0002

PATIENT
  Age: 67 Year
  Sex: Male

DRUGS (17)
  1. CILOSTAZOL [Suspect]
     Indication: PERIPHERAL VASCULAR DISORDER
     Dosage: 200 MG ORAL
     Route: 048
     Dates: start: 20050120, end: 20050129
  2. ATORVASTATIN CALCIUM [Concomitant]
  3. AMITRIPTYLINE HCL [Concomitant]
  4. KAPAKE [Concomitant]
  5. NITRAZEPAM [Concomitant]
  6. ASPIRIN [Concomitant]
  7. PILOCARPINE [Concomitant]
  8. PREDNISOLONE [Concomitant]
  9. PHOLCODINE TAB [Concomitant]
  10. LACTULOSE [Concomitant]
  11. PILOCARPINE HYDROCHLORIDE [Concomitant]
  12. FENTANYL [Concomitant]
  13. AMOXICILLIN [Concomitant]
  14. ONDANSETRON HYDROCHLORIDE [Concomitant]
  15. CARBAMAZEPINE [Concomitant]
  16. CO-COMADOL [Concomitant]
  17. ACETAMINOPHEN [Concomitant]

REACTIONS (10)
  - ACUTE LEFT VENTRICULAR FAILURE [None]
  - AORTIC ARTERIOSCLEROSIS [None]
  - ARTERIOSCLEROSIS CORONARY ARTERY [None]
  - CORONARY ARTERY STENOSIS [None]
  - DILATATION VENTRICULAR [None]
  - MYOCARDIAL FIBROSIS [None]
  - MYOCARDIAL INFARCTION [None]
  - PLEURAL EFFUSION [None]
  - PULMONARY OEDEMA [None]
  - SUDDEN DEATH [None]
